FAERS Safety Report 5352426-X (Version None)
Quarter: 2007Q2

REPORT INFORMATION
  Report Type: 
  Country: None (occurrence: None)
  Receive Date: 20070611
  Receipt Date: 20070606
  Transmission Date: 20071010
  Serious: Yes (Other)
  Sender: FDA-Public Use
  Company Number: A0612251C

PATIENT
  Age: 42 Year
  Sex: Female
  Weight: 67.2 kg

DRUGS (3)
  1. LAPATINIB [Suspect]
     Dosage: 500MG PER DAY
     Route: 048
     Dates: start: 20060623
  2. DOCETAXEL [Suspect]
     Dosage: 60MGM2 CYCLIC
     Route: 042
     Dates: start: 20060623
  3. TRASTUZUMAB [Suspect]
     Dosage: 2MGK WEEKLY
     Route: 042
     Dates: start: 20060623

REACTIONS (1)
  - EJECTION FRACTION DECREASED [None]
